FAERS Safety Report 5393442-1 (Version None)
Quarter: 2007Q3

REPORT INFORMATION
  Report Type: 
  Country: None (occurrence: None)
  Receive Date: 20070723
  Receipt Date: 20061006
  Transmission Date: 20080115
  Serious: No
  Sender: FDA-Public Use
  Company Number: A0601571A

PATIENT
  Age: 72 Year
  Sex: Female

DRUGS (10)
  1. AVANDIA [Suspect]
     Dosage: 4MG PER DAY
     Route: 048
  2. ASPIRIN [Concomitant]
  3. PRILOSEC [Concomitant]
  4. SYNTHROID [Concomitant]
  5. DIOVAN [Concomitant]
  6. GLUCOPHAGE [Concomitant]
  7. MICRONASE [Concomitant]
  8. POTASSIUM CHLORIDE [Concomitant]
  9. BUMEX [Concomitant]
  10. XANAX [Concomitant]

REACTIONS (4)
  - DIARRHOEA [None]
  - DIZZINESS [None]
  - VISION BLURRED [None]
  - WEIGHT INCREASED [None]
